FAERS Safety Report 4852951-1 (Version None)
Quarter: 2005Q4

REPORT INFORMATION
  Report Type: 
  Country: None (occurrence: None)
  Receive Date: 20051212
  Receipt Date: 20051201
  Transmission Date: 20060501
  Serious: Yes (Death, Other)
  Sender: FDA-Public Use
  Company Number: 2005-10-0305

PATIENT
  Age: 65 Year
  Sex: Female

DRUGS (6)
  1. TEMODAL [Suspect]
     Indication: MIXED OLIGO-ASTROCYTOMA
     Dosage: 140 MG QD ORAL
     Route: 048
     Dates: start: 20050824, end: 20050925
  2. RADIATION THERAPY [Concomitant]
  3. WARFARIN [Concomitant]
  4. MEDROL [Concomitant]
  5. NEXIUM [Concomitant]
  6. TRIMONIL [Concomitant]

REACTIONS (7)
  - FALL [None]
  - HAEMOGLOBIN DECREASED [None]
  - HEAD INJURY [None]
  - INTRACRANIAL TUMOUR HAEMORRHAGE [None]
  - PLATELET COUNT DECREASED [None]
  - UNEVALUABLE EVENT [None]
  - WHITE BLOOD CELL COUNT DECREASED [None]
